FAERS Safety Report 6577524-4 (Version None)
Quarter: 2010Q1

REPORT INFORMATION
  Report Type: 
  Country: None (occurrence: None)
  Receive Date: 20100211
  Receipt Date: 20100129
  Transmission Date: 20100710
  Serious: Yes (Other)
  Sender: FDA-Public Use
  Company Number: US-MYLANLABS-2009S1021876

PATIENT
  Age: 53 Year
  Sex: Male
  Weight: 103.87 kg

DRUGS (14)
  1. PHENYTOIN SODIUM [Suspect]
     Route: 048
     Dates: end: 20100117
  2. PHENYTOIN SODIUM [Suspect]
     Route: 048
     Dates: start: 20100118, end: 20100119
  3. ENALAPRIL MALEATE [Concomitant]
     Route: 048
     Dates: start: 20091201
  4. OMEPRAZOLE [Concomitant]
     Route: 048
     Dates: start: 20091203
  5. LANTUS [Concomitant]
     Route: 058
     Dates: start: 20091206
  6. NOVOLOG [Concomitant]
     Dosage: BEFORE MEALS IN ADDITION TO SLIDING SCALE COVERAGE
     Route: 058
     Dates: start: 20091206
  7. LEVETIRACETAM [Concomitant]
     Route: 048
     Dates: start: 20100108
  8. PAROXETINE HCL [Concomitant]
     Route: 048
     Dates: start: 20100118
  9. THIAMINE HCL [Concomitant]
     Route: 048
     Dates: start: 20100118
  10. ASPIRIN [Concomitant]
     Route: 048
     Dates: start: 20100118
  11. NOVOLOG [Concomitant]
     Dosage: ACCUCHECKS BEFORE MEALS W/ SLIDING SCALE COVERAGE NOVOLOG
     Route: 058
     Dates: start: 20091206
  12. NOVOLOG [Concomitant]
     Dosage: S/S: 200-300=2U; 301-400=4U; 401 + GREATER=6U
     Route: 058
     Dates: start: 20091206
  13. OXYCODONE HCL [Concomitant]
     Indication: PAIN
     Dosage: PRN
     Route: 048
     Dates: start: 20091201
  14. OXYCODONE HCL [Concomitant]
     Dosage: PRN
     Route: 048
     Dates: start: 20091203

REACTIONS (2)
  - ANTICONVULSANT DRUG LEVEL DECREASED [None]
  - DRUG INEFFECTIVE [None]
